FAERS Safety Report 16679619 (Version 1)
Quarter: 2019Q3

REPORT INFORMATION
  Report Type: Spontaneous
  Country: GB (occurrence: GB)
  Receive Date: 20190807
  Receipt Date: 20190807
  Transmission Date: 20191004
  Serious: Yes (Other)
  Sender: FDA-Public Use
  Company Number: GB-TEVA-2019-GB-1089426

PATIENT
  Age: 51 Year
  Sex: Female
  Weight: 54 kg

DRUGS (3)
  1. CITALOPRAM [Concomitant]
     Active Substance: CITALOPRAM HYDROBROMIDE
     Dosage: AS DIRECTED BY THE SPECIALIST
     Dates: start: 20181204
  2. ARIPIPRAZOLE. [Suspect]
     Active Substance: ARIPIPRAZOLE
     Dates: start: 2018, end: 20190628
  3. AMISULPRIDE [Concomitant]
     Active Substance: AMISULPRIDE
     Dates: start: 20190606

REACTIONS (2)
  - Anosmia [Recovered/Resolved]
  - Ageusia [Recovered/Resolved]
